FAERS Safety Report 19026804 (Version 15)
Quarter: 2024Q3

REPORT INFORMATION
  Report Type: Spontaneous
  Country: US (occurrence: US)
  Receive Date: 20210318
  Receipt Date: 20240725
  Transmission Date: 20241017
  Serious: Yes (Other)
  Sender: PFIZER
  Company Number: US-PFIZER INC-2021261951

PATIENT
  Age: 79 Year
  Sex: Female

DRUGS (2)
  1. XELJANZ XR [Suspect]
     Active Substance: TOFACITINIB CITRATE
     Indication: Rheumatoid arthritis
     Dosage: 11 MG, DAILY
     Route: 048
     Dates: start: 20210201, end: 20210201
  2. XELJANZ XR [Suspect]
     Active Substance: TOFACITINIB CITRATE
     Dosage: 11 MG
     Route: 048
     Dates: start: 20210303

REACTIONS (8)
  - Macular degeneration [Not Recovered/Not Resolved]
  - Condition aggravated [Unknown]
  - Abdominal discomfort [Unknown]
  - Visual impairment [Unknown]
  - Movement disorder [Unknown]
  - Pain [Unknown]
  - Nasopharyngitis [Recovering/Resolving]
  - Limb discomfort [Unknown]

NARRATIVE: CASE EVENT DATE: 20210201
